FAERS Safety Report 4926195-9 (Version None)
Quarter: 2006Q1

REPORT INFORMATION
  Report Type: 
  Country: None (occurrence: None)
  Receive Date: 20060228
  Receipt Date: 20060124
  Transmission Date: 20060701
  Serious: Yes (Hospitalization)
  Sender: FDA-Public Use
  Company Number: JP-BRISTOL-MYERS SQUIBB COMPANY-13258819

PATIENT
  Age: 60 Year
  Sex: Female

DRUGS (4)
  1. PARAPLATIN [Suspect]
     Indication: UTERINE CANCER
     Route: 042
     Dates: start: 20060120, end: 20060120
  2. TAXOL [Suspect]
     Indication: UTERINE CANCER
     Route: 042
     Dates: start: 20060120, end: 20060120
  3. CALBLOCK [Suspect]
     Route: 048
  4. TENORMIN [Suspect]
     Route: 048

REACTIONS (2)
  - ANURIA [None]
  - PLATELET COUNT DECREASED [None]
